FAERS Safety Report 21079962 (Version 4)
Quarter: 2022Q3

REPORT INFORMATION
  Report Type: Spontaneous
  Country: AT (occurrence: AT)
  Receive Date: 20220714
  Receipt Date: 20220825
  Transmission Date: 20221027
  Serious: Yes (Other)
  Sender: FDA-Public Use
  Company Number: AT-ROCHE-3135827

PATIENT
  Age: 57 Year
  Sex: Male

DRUGS (4)
  1. POLIVY [Suspect]
     Active Substance: POLATUZUMAB VEDOTIN-PIIQ
     Indication: Diffuse large B-cell lymphoma
     Route: 042
  2. OBINUTUZUMAB [Suspect]
     Active Substance: OBINUTUZUMAB
     Indication: Diffuse large B-cell lymphoma
     Route: 042
     Dates: start: 202011
  3. RITUXIMAB [Suspect]
     Active Substance: RITUXIMAB
     Indication: Diffuse large B-cell lymphoma
     Route: 042
     Dates: start: 202205
  4. BENDAMUSTINE [Suspect]
     Active Substance: BENDAMUSTINE
     Indication: Diffuse large B-cell lymphoma
     Route: 042
     Dates: start: 202011

REACTIONS (4)
  - Off label use [Unknown]
  - Brain neoplasm malignant [Unknown]
  - Metastases to central nervous system [Unknown]
  - Malignant neoplasm progression [Unknown]

NARRATIVE: CASE EVENT DATE: 20220501
